FAERS Safety Report 15207104 (Version 3)
Quarter: 2019Q3

REPORT INFORMATION
  Report Type: Spontaneous
  Country: PT (occurrence: PT)
  Receive Date: 20180727
  Receipt Date: 20190923
  Transmission Date: 20191004
  Serious: Yes (Other)
  Sender: FDA-Public Use
  Company Number: PT-BAUSCH-BL-2018-020077

PATIENT
  Age: 48 Year
  Sex: Female
  Weight: 77 kg

DRUGS (13)
  1. CASCARA SAGRADA [Interacting]
     Active Substance: FRANGULA PURSHIANA BARK
     Indication: WEIGHT CONTROL
     Route: 048
  2. SENNA [Interacting]
     Active Substance: SENNA LEAF\SENNOSIDES\SENNOSIDES A AND B
     Indication: WEIGHT CONTROL
     Route: 065
  3. PHENOLPHTHALEIN [Interacting]
     Active Substance: PHENOLPHTHALEIN
     Indication: WEIGHT CONTROL
     Route: 048
  4. TOPIRAMATE. [Interacting]
     Active Substance: TOPIRAMATE
     Indication: WEIGHT CONTROL
     Route: 048
  5. ETHINYLESTRADIOL AND GESTODENE [Interacting]
     Active Substance: ETHINYL ESTRADIOL\GESTODENE
     Dosage: RE-INTRODUCED 5 MONTHS BEFORE
     Route: 048
  6. BUPROPION. [Interacting]
     Active Substance: BUPROPION
     Indication: WEIGHT CONTROL
     Route: 048
  7. CENTELLA ASIATICA [Interacting]
     Active Substance: CENTELLA ASIATICA
     Indication: WEIGHT CONTROL
     Route: 048
  8. METFORMIN [Interacting]
     Active Substance: METFORMIN HYDROCHLORIDE
     Indication: WEIGHT CONTROL
     Route: 048
  9. ORLISTAT. [Interacting]
     Active Substance: ORLISTAT
     Indication: WEIGHT CONTROL
     Route: 048
  10. CHLORDIAZEPOXIDE. [Suspect]
     Active Substance: CHLORDIAZEPOXIDE
     Indication: WEIGHT CONTROL
     Route: 048
  11. ETHINYLESTRADIOL AND GESTODENE [Interacting]
     Active Substance: ETHINYL ESTRADIOL\GESTODENE
     Indication: ORAL CONTRACEPTION
     Dosage: 0.030 MG / 0.075 MG
     Route: 048
  12. FUROSEMIDE. [Interacting]
     Active Substance: FUROSEMIDE
     Indication: WEIGHT CONTROL
     Route: 048
  13. CHROMIUM PICOLINATE [Interacting]
     Active Substance: CHROMIUM PICOLINATE
     Indication: WEIGHT CONTROL
     Route: 048

REACTIONS (2)
  - Cerebral venous thrombosis [Unknown]
  - Drug interaction [Unknown]
